FAERS Safety Report 24609587 (Version 1)
Quarter: 2024Q4

REPORT INFORMATION
  Report Type: Spontaneous
  Country: US (occurrence: None)
  Receive Date: 20241112
  Receipt Date: 20241112
  Transmission Date: 20250115
  Serious: Yes (Hospitalization)
  Sender: Public
  Company Number: None

PATIENT
  Age: 64 Year
  Sex: Female

DRUGS (2)
  1. BEXAROTENE [Suspect]
     Active Substance: BEXAROTENE
     Indication: Cutaneous T-cell lymphoma
     Dosage: 225MG QD
  2. ACTIMMUNE [Suspect]
     Active Substance: INTERFERON GAMMA-1B
     Dosage: 0.ML 3 TIMES WEEKLY

REACTIONS (1)
  - Pneumonia mycoplasmal [None]
